FAERS Safety Report 5218795-6 (Version None)
Quarter: 2007Q1

REPORT INFORMATION
  Report Type: 
  Country: None (occurrence: None)
  Receive Date: 20070123
  Receipt Date: 20070104
  Transmission Date: 20070707
  Serious: Yes (Other)
  Sender: FDA-Public Use
  Company Number: VNL_0367_2007

PATIENT
  Age: 70 Year
  Sex: Male
  Weight: 86.1834 kg

DRUGS (12)
  1. APOKYN [Suspect]
     Indication: PARKINSON'S DISEASE
     Dosage: 0.2 ML ONCE SC
     Route: 058
     Dates: start: 20070103, end: 20070103
  2. APOKYN [Suspect]
     Indication: PARKINSON'S DISEASE
     Dosage: DF SC
     Dates: start: 20070101
  3. CARBIDOPA AND LEVODOPA [Concomitant]
  4. CLONAZEPAM [Concomitant]
  5. NEURONTIN [Concomitant]
  6. ACIPHEX [Concomitant]
  7. MIRAPEX [Concomitant]
  8. COMTAN [Concomitant]
  9. DEMEROL [Concomitant]
  10. VALIUM [Concomitant]
  11. TALWIN [Concomitant]
  12. BENADRYL [Concomitant]

REACTIONS (6)
  - BLOOD PRESSURE INCREASED [None]
  - CHEST PAIN [None]
  - DYSPNOEA [None]
  - FEELING ABNORMAL [None]
  - FLUSHING [None]
  - HEADACHE [None]
